FAERS Safety Report 10726311 (Version 1)
Quarter: 2015Q1

REPORT INFORMATION
  Report Type: Spontaneous
  Country: US (occurrence: None)
  Receive Date: 20150120
  Receipt Date: 20150120
  Transmission Date: 20150721
  Serious: No
  Sender: FDA-Public Use
  Company Number: None

PATIENT
  Age: 45 Year
  Sex: Male

DRUGS (1)
  1. CAPECITABINE 500MG TEVA PHARMACEUTICALS [Suspect]
     Active Substance: CAPECITABINE
     Indication: OESOPHAGEAL CARCINOMA
     Dosage: 2000MG BID FO 7 DAYS ON AND 7 DAYS PO
     Route: 048
     Dates: start: 20141121

REACTIONS (2)
  - Skin discolouration [None]
  - Diarrhoea [None]
